FAERS Safety Report 18692489 (Version 2)
Quarter: 2021Q1

REPORT INFORMATION
  Report Type: Report from Study
  Country: None (occurrence: US)
  Receive Date: 20210103
  Receipt Date: 20210225
  Transmission Date: 20210419
  Serious: Yes (Hospitalization)
  Sender: FDA-Public Use
  Company Number: US-ABBVIE-20K-163-3712660-00

PATIENT
  Sex: Female
  Weight: 72.64 kg

DRUGS (1)
  1. HUMIRA [Suspect]
     Active Substance: ADALIMUMAB
     Indication: PSORIASIS
     Dosage: UNIT DOSE: ONE SHOT
     Route: 058

REACTIONS (1)
  - Renal failure [Not Recovered/Not Resolved]
